FAERS Safety Report 10948808 (Version 1)
Quarter: 2015Q1

REPORT INFORMATION
  Report Type: Spontaneous
  Country: US (occurrence: None)
  Receive Date: 20150323
  Receipt Date: 20150323
  Transmission Date: 20150721
  Serious: No
  Sender: FDA-Public Use
  Company Number: None

PATIENT
  Age: 26 Year
  Sex: Female
  Weight: 76.2 kg

DRUGS (1)
  1. LATUDA [Suspect]
     Active Substance: LURASIDONE HYDROCHLORIDE
     Indication: BIPOLAR DISORDER
     Dosage: 1 PILL
     Route: 048
     Dates: start: 201309, end: 201404

REACTIONS (5)
  - Tremor [None]
  - Sleep disorder [None]
  - Seizure [None]
  - Tongue biting [None]
  - Dyskinesia [None]

NARRATIVE: CASE EVENT DATE: 20140201
